FAERS Safety Report 21959091 (Version 1)
Quarter: 2023Q1

REPORT INFORMATION
  Report Type: Spontaneous
  Country: US (occurrence: US)
  Receive Date: 20230206
  Receipt Date: 20230206
  Transmission Date: 20230418
  Serious: No
  Sender: FDA-Public Use
  Company Number: US-BAYER-2023A013552

PATIENT
  Sex: Female

DRUGS (4)
  1. MIRALAX [Suspect]
     Active Substance: POLYETHYLENE GLYCOL 3350
     Indication: Gastrointestinal disorder
     Dosage: 1 CAPFUL A DAY DOSE
     Route: 048
     Dates: start: 20230128, end: 20230130
  2. LAMICTAL [Concomitant]
     Active Substance: LAMOTRIGINE
  3. NEUROTON [CITICOLINE SODIUM] [Concomitant]
  4. ABILIFY [Concomitant]
     Active Substance: ARIPIPRAZOLE

REACTIONS (1)
  - Drug ineffective [Unknown]
